FAERS Safety Report 10727131 (Version 1)
Quarter: 2015Q1

REPORT INFORMATION
  Report Type: Report from Study
  Country: AU (occurrence: AU)
  Receive Date: 20150121
  Receipt Date: 20150121
  Transmission Date: 20150721
  Serious: Yes (Life-Threatening, Other)
  Sender: FDA-Public Use
  Company Number: AU-ASTRAZENECA-2015SE03939

PATIENT
  Age: 13 Week

DRUGS (4)
  1. CAUDAL [Suspect]
     Active Substance: CILOSTAZOL
     Indication: ANAESTHESIA
  2. ROPIVACAINE [Suspect]
     Active Substance: ROPIVACAINE
     Indication: ANAESTHESIA
  3. SEVOFLURANE. [Suspect]
     Active Substance: SEVOFLURANE
     Indication: ANAESTHESIA
  4. NITROUS OXIDE. [Suspect]
     Active Substance: NITROUS OXIDE
     Indication: ANAESTHESIA

REACTIONS (7)
  - Cardiac arrest [Recovered/Resolved]
  - Bradycardia [Recovered/Resolved]
  - Seizure [Recovered/Resolved]
  - Ventricular fibrillation [Recovered/Resolved]
  - Cardiac output decreased [Recovered/Resolved]
  - Hypotension [Recovered/Resolved]
  - Tachycardia [Recovered/Resolved]
